FAERS Safety Report 6976670-0 (Version None)
Quarter: 2010Q3

REPORT INFORMATION
  Report Type: 
  Country: None (occurrence: None)
  Receive Date: 20100910
  Receipt Date: 20100830
  Transmission Date: 20110219
  Serious: Yes (Other)
  Sender: FDA-Public Use
  Company Number: US-PFIZER INC-2010052416

PATIENT
  Sex: Female
  Weight: 84 kg

DRUGS (7)
  1. CHANTIX [Suspect]
     Indication: SMOKING CESSATION THERAPY
     Dosage: 0.5 MG, 1X/DAY, FOR 3 DAYS
     Route: 048
     Dates: start: 20090101, end: 20090101
  2. CHANTIX [Suspect]
     Dosage: 0.5 MG, 2X/DAY, FOR 4 DAYS
     Route: 048
     Dates: start: 20090101, end: 20090101
  3. CHANTIX [Suspect]
     Dosage: 1 MG, TWICE DAILY
  4. CHANTIX [Suspect]
     Dosage: 1 MG, UNK
     Dates: start: 20100101
  5. XANAX [Concomitant]
     Indication: ANXIETY
     Dosage: UNK
  6. PROMETHAZINE [Concomitant]
     Indication: ABDOMINAL DISCOMFORT
     Dosage: UNK
  7. VENTOLIN [Concomitant]
     Indication: DYSPNOEA
     Dosage: UNK
     Route: 055

REACTIONS (9)
  - DEPRESSION [None]
  - DIZZINESS [None]
  - IRRITABILITY [None]
  - NAUSEA [None]
  - NEGATIVE THOUGHTS [None]
  - NERVOUSNESS [None]
  - NIGHTMARE [None]
  - PERSONALITY CHANGE [None]
  - TREMOR [None]
